FAERS Safety Report 24265548 (Version 1)
Quarter: 2024Q3

REPORT INFORMATION
  Report Type: Spontaneous
  Country: CN (occurrence: CN)
  Receive Date: 20240829
  Receipt Date: 20240829
  Transmission Date: 20241017
  Serious: Yes (Hospitalization)
  Sender: BEIGENE
  Company Number: CN-BEIGENE-BGN-2024-013258

PATIENT

DRUGS (3)
  1. TISLELIZUMAB [Suspect]
     Active Substance: TISLELIZUMAB
     Indication: Lung neoplasm malignant
     Dosage: 200 MILLIGRAM, D1
     Route: 041
     Dates: start: 20240304
  2. NEDAPLATIN [Suspect]
     Active Substance: NEDAPLATIN
     Indication: Lung neoplasm malignant
     Dosage: 110 MILLIGRAM, D1
     Route: 041
     Dates: start: 20240304
  3. PACLITAXEL [Suspect]
     Active Substance: PACLITAXEL
     Indication: Lung neoplasm malignant
     Dosage: 200 MILLIGRAM,D1-8
     Route: 041
     Dates: start: 20240304

REACTIONS (4)
  - Myelosuppression [Recovering/Resolving]
  - Dyspnoea [Recovering/Resolving]
  - Mouth ulceration [Recovering/Resolving]
  - Diarrhoea [Recovering/Resolving]

NARRATIVE: CASE EVENT DATE: 20240318
